FAERS Safety Report 12393872 (Version 1)
Quarter: 2016Q2

REPORT INFORMATION
  Report Type: Spontaneous
  Country: US (occurrence: None)
  Receive Date: 20160520
  Receipt Date: 20160520
  Transmission Date: 20160815
  Serious: Yes (Other)
  Sender: FDA-Public Use
  Company Number: None

PATIENT
  Age: 48 Year
  Sex: Female
  Weight: 68.04 kg

DRUGS (7)
  1. LORZONE [Concomitant]
     Active Substance: CHLORZOXAZONE
  2. HYDROCODONE [Concomitant]
     Active Substance: HYDROCODONE
  3. GABEPENTIN [Concomitant]
  4. PROBIOTIC [Concomitant]
     Active Substance: PROBIOTICS NOS
  5. PROLIA [Suspect]
     Active Substance: DENOSUMAB
  6. VITAMIN D3 [Concomitant]
     Active Substance: CHOLECALCIFEROL
  7. CYMBALTA [Concomitant]
     Active Substance: DULOXETINE HYDROCHLORIDE

REACTIONS (8)
  - Pain in jaw [None]
  - Ear infection [None]
  - Vomiting [None]
  - Sinusitis [None]
  - Rash generalised [None]
  - Erythema [None]
  - Swelling face [None]
  - Nausea [None]

NARRATIVE: CASE EVENT DATE: 20160504
